FAERS Safety Report 7294281-7 (Version None)
Quarter: 2011Q1

REPORT INFORMATION
  Report Type: 
  Country: None (occurrence: None)
  Receive Date: 20110215
  Receipt Date: 20101220
  Transmission Date: 20110831
  Serious: Yes (Hospitalization)
  Sender: FDA-Public Use
  Company Number: US-B.I. PHARMACEUTICALS,INC./RIDGEFIELD-2011-BP-02767BP

PATIENT
  Sex: Female

DRUGS (6)
  1. LISINOPRIL [Concomitant]
  2. ZANTAC [Concomitant]
  3. ASPIRIN [Concomitant]
  4. MULTAQ [Concomitant]
  5. PRADAXA [Suspect]
  6. PLAVIX [Concomitant]

REACTIONS (1)
  - HAEMORRHAGE [None]
